FAERS Safety Report 25070437 (Version 1)
Quarter: 2025Q1

REPORT INFORMATION
  Report Type: Spontaneous
  Country: US (occurrence: US)
  Receive Date: 20250312
  Receipt Date: 20250312
  Transmission Date: 20250409
  Serious: No
  Sender: SANOFI AVENTIS
  Company Number: US-SA-2025SA071077

PATIENT
  Sex: Male
  Weight: 104.55 kg

DRUGS (3)
  1. DUPIXENT [Suspect]
     Active Substance: DUPILUMAB
     Indication: Dermatitis atopic
     Dosage: 300 MG, QOW
     Route: 058
     Dates: end: 2024
  2. DUPIXENT [Suspect]
     Active Substance: DUPILUMAB
     Dosage: 300 MG, QOW
     Route: 058
  3. ZEPBOUND [Concomitant]
     Active Substance: TIRZEPATIDE
     Indication: Weight increased

REACTIONS (6)
  - Hyperphagia [Unknown]
  - Amblyopia [Unknown]
  - Visual impairment [Unknown]
  - Dermatitis atopic [Unknown]
  - Pruritus [Unknown]
  - Stab wound [Unknown]

NARRATIVE: CASE EVENT DATE: 20240101
